FAERS Safety Report 8413214-0 (Version None)
Quarter: 2012Q2

REPORT INFORMATION
  Report Type: 
  Country: None (occurrence: None)
  Receive Date: 20120605
  Receipt Date: 20120530
  Transmission Date: 20120825
  Serious: Yes (Other)
  Sender: FDA-Public Use
  Company Number: US-PFIZER INC-2012118285

PATIENT
  Sex: Male
  Weight: 75 kg

DRUGS (4)
  1. LYRICA [Suspect]
     Indication: BACK PAIN
     Dosage: 75 MG, 2X/DAY
     Route: 048
     Dates: start: 20120514, end: 20120525
  2. LIPITOR [Concomitant]
     Indication: BLOOD CHOLESTEROL INCREASED
     Dosage: 40 MG, 1X/DAY
  3. LYRICA [Suspect]
     Dosage: ONE 75MG CAPSULE IN THE MORNING AND TWO 75MG CAPSULES AT NIGHT
     Route: 048
     Dates: start: 20120525, end: 20120528
  4. LEVOTHYROXINE [Concomitant]
     Indication: HYPOTHYROIDISM
     Dosage: UNK
     Dates: end: 20120527

REACTIONS (8)
  - DIZZINESS [None]
  - FEELING DRUNK [None]
  - EUPHORIC MOOD [None]
  - MALAISE [None]
  - HYPOKINESIA [None]
  - NAUSEA [None]
  - FEELING ABNORMAL [None]
  - BACK PAIN [None]
